FAERS Safety Report 6003867-9 (Version None)
Quarter: 2008Q4

REPORT INFORMATION
  Report Type: 
  Country: None (occurrence: None)
  Receive Date: 20081216
  Receipt Date: 20081212
  Transmission Date: 20090506
  Serious: Yes (Life-Threatening, Hospitalization)
  Sender: FDA-Public Use
  Company Number: PHHY2008DE30512

PATIENT
  Sex: Female

DRUGS (3)
  1. MELLARIL [Suspect]
     Dosage: 100 MG, 2 TABLETS DAILY
     Route: 048
     Dates: start: 19980101, end: 20080912
  2. CARBAMAZEPINE [Suspect]
     Dosage: 400 MG, 2 TABLETS DAILY
     Route: 048
     Dates: start: 19980101
  3. HYDROCHLOROTHIAZIDE [Suspect]
     Dosage: 25 MG, 2 TABLETS DAILY
     Route: 048
     Dates: start: 19980101

REACTIONS (2)
  - LONG QT SYNDROME [None]
  - TORSADE DE POINTES [None]
